FAERS Safety Report 25858040 (Version 1)
Quarter: 2025Q3

REPORT INFORMATION
  Report Type: Spontaneous
  Country: GB (occurrence: GB)
  Receive Date: 20250929
  Receipt Date: 20250929
  Transmission Date: 20251021
  Serious: Yes (Hospitalization, Other)
  Sender: TEVA
  Company Number: GB-002147023-NVSC2025GB148751

PATIENT
  Age: 60 Year
  Sex: Female

DRUGS (2)
  1. LETROZOLE [Suspect]
     Active Substance: LETROZOLE
     Indication: Hormone receptor positive HER2 negative breast cancer
     Route: 065
  2. RIBOCICLIB [Suspect]
     Active Substance: RIBOCICLIB
     Indication: Hormone receptor positive HER2 negative breast cancer
     Route: 065

REACTIONS (13)
  - Pneumonia aspiration [Unknown]
  - Pneumonia klebsiella [Unknown]
  - Pulmonary embolism [Unknown]
  - Dyspnoea exertional [Unknown]
  - Depression [Unknown]
  - Oesophageal dilatation [Unknown]
  - Hiatus hernia [Unknown]
  - Cough [Unknown]
  - Suicidal ideation [Unknown]
  - Hypoxia [Unknown]
  - Disease recurrence [Unknown]
  - Obstructive sleep apnoea syndrome [Unknown]
  - Asthma [Unknown]

NARRATIVE: CASE EVENT DATE: 20250601
